FAERS Safety Report 15822474 (Version 1)
Quarter: 2019Q1

REPORT INFORMATION
  Report Type: Spontaneous
  Country: US (occurrence: US)
  Receive Date: 20190114
  Receipt Date: 20190114
  Transmission Date: 20190417
  Serious: No
  Sender: FDA-Public Use
  Company Number: US-JNJFOC-20181208804

PATIENT
  Sex: Male
  Weight: 58.97 kg

DRUGS (4)
  1. ZOLOFT [Concomitant]
     Active Substance: SERTRALINE HYDROCHLORIDE
     Indication: DEPRESSION
     Route: 065
  2. RISPERDAL [Suspect]
     Active Substance: RISPERIDONE
     Indication: SCHIZOPHRENIA
     Route: 048
     Dates: start: 2015
  3. FENOFIBRATE. [Concomitant]
     Active Substance: FENOFIBRATE
     Indication: BLOOD TRIGLYCERIDES INCREASED
     Route: 065
  4. RISPERDAL CONSTA [Suspect]
     Active Substance: RISPERIDONE
     Indication: SCHIZOPHRENIA
     Route: 030
     Dates: start: 2014, end: 2015

REACTIONS (7)
  - Social avoidant behaviour [Not Recovered/Not Resolved]
  - Personality change [Unknown]
  - Off label use [Unknown]
  - Speech disorder [Unknown]
  - Treatment noncompliance [Unknown]
  - Abnormal behaviour [Unknown]
  - Inappropriate schedule of product administration [Unknown]
